FAERS Safety Report 11292109 (Version 2)
Quarter: 2015Q3

REPORT INFORMATION
  Report Type: Spontaneous
  Country: FR (occurrence: FR)
  Receive Date: 20150722
  Receipt Date: 20150915
  Transmission Date: 20151125
  Serious: Yes (Hospitalization, Other)
  Sender: FDA-Public Use
  Company Number: FR-PFIZER INC-2015238886

PATIENT
  Age: 77 Year
  Sex: Male

DRUGS (12)
  1. IMODIUM [Suspect]
     Active Substance: LOPERAMIDE HYDROCHLORIDE
     Dosage: 2 MG, 1X/DAY
     Route: 048
     Dates: start: 20150113, end: 20150115
  2. LOXAPAC /00401802/ [Suspect]
     Active Substance: LOXAPINE SUCCINATE
     Dosage: 1 DF, DAILY IF NEEDED
     Route: 030
     Dates: end: 20150218
  3. DOLIPRANE [Concomitant]
     Active Substance: ACETAMINOPHEN
     Dosage: 1000 MG, 3X/DAY, IF NEEDED
     Route: 048
     Dates: end: 20150128
  4. PREVISCAN [Concomitant]
     Active Substance: FLUINDIONE
     Dosage: 20 MG, UNK
     Route: 048
     Dates: end: 20150127
  5. SERESTA [Suspect]
     Active Substance: OXAZEPAM
     Dosage: 50 MG, 3X/DAY
     Route: 048
     Dates: end: 20150218
  6. NEULEPTIL [Suspect]
     Active Substance: PERICIAZINE
     Dosage: UNK
     Route: 048
     Dates: end: 20150209
  7. GLUCOPHAGE [Suspect]
     Active Substance: METFORMIN HYDROCHLORIDE
     Dosage: 3000 MG, DAILY
     Route: 048
     Dates: end: 20150126
  8. LYRICA [Suspect]
     Active Substance: PREGABALIN
     Dosage: 50 MG, 1X/DAY
     Route: 048
     Dates: end: 20150129
  9. SOTALEX [Suspect]
     Active Substance: SOTALOL
     Dosage: (80 MG SCORED TABLET) AT UNSPECIFIED DOSAGE
     Route: 048
     Dates: end: 20150218
  10. TEGRETOL [Suspect]
     Active Substance: CARBAMAZEPINE
     Dosage: 400 MG, DAILY
     Route: 048
     Dates: end: 20150218
  11. NOCTAMIDE [Suspect]
     Active Substance: LORMETAZEPAM
     Dosage: 2 MG, 1X/DAY BEDTIME
     Route: 048
     Dates: start: 20141212, end: 20150218
  12. STILNOX [Suspect]
     Active Substance: ZOLPIDEM TARTRATE
     Dosage: 10 MG, 1X/DAY
     Route: 048
     Dates: end: 20150218

REACTIONS (3)
  - Fall [Recovered/Resolved]
  - Aphasia [Unknown]
  - Hypotension [Recovered/Resolved]

NARRATIVE: CASE EVENT DATE: 20150119
